FAERS Safety Report 9310264 (Version 3)
Quarter: 2013Q3

REPORT INFORMATION
  Report Type: Spontaneous
  Country: BR (occurrence: BR)
  Receive Date: 20130527
  Receipt Date: 20130902
  Transmission Date: 20140515
  Serious: Yes (Other)
  Sender: FDA-Public Use
  Company Number: PHHY2013BR052301

PATIENT
  Sex: Female
  Weight: 47 kg

DRUGS (8)
  1. RITALIN LA [Suspect]
     Indication: ATTENTION DEFICIT/HYPERACTIVITY DISORDER
     Dosage: ONE CAPSULE (10MG) DAILY
     Route: 048
  2. RITALIN LA [Suspect]
     Dosage: TWO CAPSULES (20MG) DAILY
     Route: 048
  3. RITALIN LA [Suspect]
     Dosage: ONE CAPSULE (30MG) DAILY
     Route: 048
  4. RITALIN LA [Suspect]
     Dosage: TWICE DAILY (20MG)
     Route: 048
  5. RITALIN LA [Suspect]
     Dosage: ONE CAPSULE (40MG) DAILY
     Route: 048
  6. VYVANSE [Suspect]
     Indication: ATTENTION DEFICIT/HYPERACTIVITY DISORDER
     Dosage: UNK UKN, UNK
  7. LEXAPRO [Concomitant]
     Indication: ANXIETY
     Dosage: 2 DF, BID (20MG)
  8. LEXAPRO [Concomitant]
     Dosage: 1 DF, QD (10MG)
     Route: 048

REACTIONS (8)
  - Irritability [Not Recovered/Not Resolved]
  - Somnolence [Not Recovered/Not Resolved]
  - Palpitations [Not Recovered/Not Resolved]
  - Tachycardia [Not Recovered/Not Resolved]
  - Nausea [Not Recovered/Not Resolved]
  - Disturbance in attention [Not Recovered/Not Resolved]
  - Performance status decreased [Not Recovered/Not Resolved]
  - Drug effect decreased [Not Recovered/Not Resolved]
